FAERS Safety Report 25405003 (Version 1)
Quarter: 2025Q2

REPORT INFORMATION
  Report Type: Spontaneous
  Country: CN (occurrence: CN)
  Receive Date: 20250606
  Receipt Date: 20250606
  Transmission Date: 20250716
  Serious: Yes (Other)
  Sender: RANBAXY
  Company Number: CN-SUN PHARMACEUTICAL INDUSTRIES LTD-2025R1-509802

PATIENT
  Sex: Male
  Weight: 2.35 kg

DRUGS (4)
  1. ASPIRIN [Suspect]
     Active Substance: ASPIRIN
     Indication: Thrombosis prophylaxis
     Route: 064
  2. PROGESTERONE [Suspect]
     Active Substance: PROGESTERONE
     Indication: Luteal phase deficiency
     Dosage: 20 MILLIGRAM, QD
     Route: 064
  3. DUPHASTON [Suspect]
     Active Substance: DYDROGESTERONE
     Indication: Luteal phase deficiency
     Dosage: 10 MILLIGRAM, TID
     Route: 064
  4. UTROGESTAN [Suspect]
     Active Substance: PROGESTERONE
     Indication: Luteal phase deficiency
     Route: 064

REACTIONS (4)
  - Foetal exposure during pregnancy [Unknown]
  - Premature baby [Unknown]
  - Low birth weight baby [Unknown]
  - Foetal distress syndrome [Unknown]
